FAERS Safety Report 25897916 (Version 3)
Quarter: 2025Q4

REPORT INFORMATION
  Report Type: Spontaneous
  Country: AR (occurrence: AR)
  Receive Date: 20251008
  Receipt Date: 20251126
  Transmission Date: 20260117
  Serious: No
  Sender: PFIZER
  Company Number: AR-PFIZER INC-202500197822

PATIENT
  Age: 7 Year
  Sex: Male

DRUGS (1)
  1. GENOTROPIN [Suspect]
     Active Substance: SOMATROPIN
     Indication: Short stature
     Dosage: 1.1 MG 6 TIMES A WEEK
     Dates: start: 20250117

REACTIONS (3)
  - Device breakage [Unknown]
  - Device mechanical issue [Unknown]
  - Drug dose omission by device [Unknown]

NARRATIVE: CASE EVENT DATE: 20251002
